FAERS Safety Report 9132152 (Version 23)
Quarter: 2016Q3

REPORT INFORMATION
  Report Type: Spontaneous
  Country: DK (occurrence: DE)
  Receive Date: 20130301
  Receipt Date: 20160729
  Transmission Date: 20161109
  Serious: Yes (Hospitalization, Other)
  Sender: FDA-Public Use
  Company Number: DE-FRI-1000043006

PATIENT
  Sex: Male

DRUGS (3)
  1. ESCITALOPRAM [Suspect]
     Active Substance: ESCITALOPRAM OXALATE
     Indication: PAIN
  2. ESCITALOPRAM [Suspect]
     Active Substance: ESCITALOPRAM OXALATE
     Indication: DEPRESSION
     Dosage: 2.5 - 10 MG PER DAY; FOR SIX MONTHS 10 MG/DAY
     Route: 048
     Dates: start: 201004, end: 201207
  3. ESCITALOPRAM [Suspect]
     Active Substance: ESCITALOPRAM OXALATE
     Indication: SOMATIC SYMPTOM DISORDER

REACTIONS (24)
  - Atrial fibrillation [Not Recovered/Not Resolved]
  - Seborrhoeic dermatitis [Recovered/Resolved]
  - Glycosylated haemoglobin increased [Recovered/Resolved]
  - Diabetes mellitus [Recovered/Resolved]
  - Migraine [Unknown]
  - Hyperhidrosis [Unknown]
  - Weight increased [Recovered/Resolved]
  - Disturbance in attention [Unknown]
  - Depressed level of consciousness [Unknown]
  - Mood swings [Unknown]
  - Diffuse alopecia [Not Recovered/Not Resolved]
  - Lipoprotein (a) increased [Unknown]
  - Asthenia [Unknown]
  - Supraventricular extrasystoles [Not Recovered/Not Resolved]
  - Restlessness [Unknown]
  - Ventricular extrasystoles [Not Recovered/Not Resolved]
  - Alopecia [Not Recovered/Not Resolved]
  - Obesity [Recovered/Resolved]
  - Arrhythmia [Unknown]
  - Lipid metabolism disorder [Recovered/Resolved]
  - Hormone level abnormal [Recovered/Resolved]
  - Blood testosterone decreased [Recovered/Resolved]
  - Dyslipidaemia [Recovered/Resolved]
  - Coronary artery disease [Unknown]

NARRATIVE: CASE EVENT DATE: 2012
